FAERS Safety Report 19808012 (Version 18)
Quarter: 2022Q2

REPORT INFORMATION
  Report Type: Other
  Country: JP (occurrence: JP)
  Receive Date: 20210908
  Receipt Date: 20220624
  Transmission Date: 20220720
  Serious: Yes (Hospitalization, Other)
  Sender: FDA-Public Use
  Company Number: JP-CHUGAI-A2021001841ROCHE

PATIENT
  Age: 55 Year
  Sex: Male
  Weight: 50 kg

DRUGS (19)
  1. ATEZOLIZUMAB [Suspect]
     Active Substance: ATEZOLIZUMAB
     Indication: Lung adenocarcinoma
     Route: 041
     Dates: start: 20201202, end: 20201202
  2. ATEZOLIZUMAB [Suspect]
     Active Substance: ATEZOLIZUMAB
     Route: 041
     Dates: start: 20210104, end: 20210104
  3. ATEZOLIZUMAB [Suspect]
     Active Substance: ATEZOLIZUMAB
     Route: 041
     Dates: start: 2021, end: 2021
  4. ATEZOLIZUMAB [Suspect]
     Active Substance: ATEZOLIZUMAB
     Route: 041
     Dates: start: 2021, end: 20220317
  5. BEVACIZUMAB [Suspect]
     Active Substance: BEVACIZUMAB
     Indication: Lung adenocarcinoma
     Route: 041
     Dates: start: 20201202, end: 20201202
  6. BEVACIZUMAB [Suspect]
     Active Substance: BEVACIZUMAB
     Route: 041
     Dates: start: 20210104, end: 20210104
  7. BEVACIZUMAB [Suspect]
     Active Substance: BEVACIZUMAB
     Route: 041
     Dates: start: 2021, end: 2021
  8. BEVACIZUMAB [Suspect]
     Active Substance: BEVACIZUMAB
     Route: 041
     Dates: start: 2021, end: 20211222
  9. BEVACIZUMAB [Suspect]
     Active Substance: BEVACIZUMAB
     Route: 041
     Dates: start: 20220317, end: 20220317
  10. CARBOPLATIN [Suspect]
     Active Substance: CARBOPLATIN
     Indication: Lung adenocarcinoma
     Route: 041
     Dates: start: 20201202, end: 20201202
  11. CARBOPLATIN [Suspect]
     Active Substance: CARBOPLATIN
     Route: 041
     Dates: start: 20210104, end: 20210104
  12. CARBOPLATIN [Suspect]
     Active Substance: CARBOPLATIN
     Route: 041
     Dates: end: 20210215
  13. PACLITAXEL [Suspect]
     Active Substance: PACLITAXEL
     Indication: Lung adenocarcinoma
     Route: 041
     Dates: start: 20201202, end: 20201202
  14. PACLITAXEL [Suspect]
     Active Substance: PACLITAXEL
     Route: 041
     Dates: start: 20210104, end: 20210104
  15. PACLITAXEL [Suspect]
     Active Substance: PACLITAXEL
     Route: 041
     Dates: end: 20210215
  16. CALCIUM LACTATE [Suspect]
     Active Substance: CALCIUM LACTATE
     Indication: Hypoparathyroidism
     Route: 048
     Dates: start: 19981001
  17. LEVOTHYROXINE [Suspect]
     Active Substance: LEVOTHYROXINE
     Indication: Hypoparathyroidism
     Route: 048
     Dates: start: 19981001
  18. LEVOTHYROXINE [Concomitant]
     Active Substance: LEVOTHYROXINE
     Indication: Hypoparathyroidism
     Dosage: 100 MICROGRAM
     Route: 048
     Dates: start: 19981001
  19. CALCIUM LACTATE [Concomitant]
     Active Substance: CALCIUM LACTATE
     Indication: Hypoparathyroidism
     Dosage: 3 GRAM
     Route: 048
     Dates: start: 19981001

REACTIONS (26)
  - Colitis [Recovered/Resolved]
  - Cancer pain [Unknown]
  - Pneumonia [Recovered/Resolved]
  - Gamma-glutamyltransferase increased [Recovering/Resolving]
  - Reactive gastropathy [Recovered/Resolved]
  - Submaxillary gland enlargement [Recovered/Resolved]
  - Rash [Recovering/Resolving]
  - Hypocalcaemia [Recovered/Resolved]
  - Arthralgia [Recovered/Resolved]
  - Hypomagnesaemia [Recovered/Resolved]
  - Hypophosphataemia [Recovered/Resolved]
  - Oral mucosal eruption [Recovering/Resolving]
  - Glossodynia [Recovered/Resolved]
  - Glaucoma [Recovering/Resolving]
  - Haemorrhoids [Recovering/Resolving]
  - Hepatic function abnormal [Recovered/Resolved]
  - Stomatitis [Recovering/Resolving]
  - Peripheral sensory neuropathy [Recovered/Resolved]
  - Insomnia [Recovered/Resolved]
  - Pruritus [Recovered/Resolved]
  - Rash [Recovered/Resolved]
  - Urticaria [Recovering/Resolving]
  - Pyrexia [Recovered/Resolved]
  - Arthralgia [Recovering/Resolving]
  - Abdominal pain upper [Recovering/Resolving]
  - Radiation skin injury [Recovering/Resolving]

NARRATIVE: CASE EVENT DATE: 20201206
